FAERS Safety Report 8069809-X (Version None)
Quarter: 2012Q1

REPORT INFORMATION
  Report Type: 
  Country: None (occurrence: None)
  Receive Date: 20120125
  Receipt Date: 20120125
  Transmission Date: 20120608
  Serious: Yes (Other)
  Sender: FDA-Public Use
  Company Number: None

PATIENT
  Age: 60 Year
  Sex: Male
  Weight: 79.378 kg

DRUGS (2)
  1. LAMICTAL [Concomitant]
  2. CLONAZEPAM [Suspect]
     Indication: BIPOLAR I DISORDER
     Dosage: 1.0 MG
     Route: 048
     Dates: start: 20061123, end: 20120124

REACTIONS (7)
  - GAIT DISTURBANCE [None]
  - LIGAMENT RUPTURE [None]
  - FALL [None]
  - MOTOR DYSFUNCTION [None]
  - DIPLOPIA [None]
  - BALANCE DISORDER [None]
  - ATAXIA [None]
